FAERS Safety Report 4869846-X (Version None)
Quarter: 2005Q4

REPORT INFORMATION
  Report Type: 
  Country: None (occurrence: None)
  Receive Date: 20051230
  Receipt Date: 20051006
  Transmission Date: 20060501
  Serious: Yes (Hospitalization, Disabling, Other)
  Sender: FDA-Public Use
  Company Number: US-MERCK-0510USA05774

PATIENT
  Age: 70 Year
  Sex: Female
  Weight: 98 kg

DRUGS (2)
  1. VIOXX [Suspect]
     Indication: ARTHRALGIA
     Route: 048
     Dates: start: 20010101, end: 20040901
  2. VIOXX [Suspect]
     Route: 048
     Dates: start: 20010101, end: 20040901

REACTIONS (22)
  - ADVERSE EVENT [None]
  - ARTHROPATHY [None]
  - BLOOD PRESSURE SYSTOLIC DECREASED [None]
  - CARDIAC DISORDER [None]
  - CAROTID ARTERY STENOSIS [None]
  - CEREBROVASCULAR ACCIDENT [None]
  - CHEST PAIN [None]
  - CORONARY ARTERY DISEASE [None]
  - CORONARY ARTERY OCCLUSION [None]
  - CORONARY ARTERY STENOSIS [None]
  - EYE DISORDER [None]
  - FALL [None]
  - HYPERLIPIDAEMIA [None]
  - HYPERTENSION [None]
  - INFARCTION [None]
  - NAUSEA [None]
  - NERVE INJURY [None]
  - SYNCOPE [None]
  - THROMBOSIS [None]
  - THROMBOTIC STROKE [None]
  - URINARY TRACT INFECTION [None]
  - VASCULAR GRAFT OCCLUSION [None]
